FAERS Safety Report 7060310-9 (Version None)
Quarter: 2010Q4

REPORT INFORMATION
  Report Type: 
  Country: None (occurrence: None)
  Receive Date: 20101025
  Receipt Date: 20101019
  Transmission Date: 20110411
  Serious: Yes (Hospitalization, Congenital Anomaly)
  Sender: FDA-Public Use
  Company Number: A0853139A

PATIENT
  Sex: Female
  Weight: 3.4 kg

DRUGS (7)
  1. PAXIL [Suspect]
     Indication: DEPRESSION
     Dosage: 15MG TWICE PER DAY
     Dates: start: 20020308, end: 20020910
  2. CLEOCIN [Concomitant]
  3. ALLEGRA [Concomitant]
  4. FLEXERIL [Concomitant]
  5. ZITHROMAX [Concomitant]
  6. PHENERGAN [Concomitant]
  7. COUGH SYRUP [Concomitant]

REACTIONS (6)
  - ATRIAL SEPTAL DEFECT [None]
  - CONGENITAL TRICUSPID VALVE ATRESIA [None]
  - DRUG EXPOSURE DURING PREGNANCY [None]
  - PULMONARY VALVE STENOSIS [None]
  - VENTRICULAR HYPOPLASIA [None]
  - VENTRICULAR SEPTAL DEFECT [None]
